FAERS Safety Report 24542289 (Version 1)
Quarter: 2024Q4

REPORT INFORMATION
  Report Type: Spontaneous
  Country: US (occurrence: US)
  Receive Date: 20241023
  Receipt Date: 20241023
  Transmission Date: 20250114
  Serious: No
  Sender: SANOFI AVENTIS
  Company Number: US-SA-2024SA304620

PATIENT

DRUGS (2)
  1. DUPIXENT [Suspect]
     Active Substance: DUPILUMAB
     Dosage: UNK
  2. BENADRYL [Suspect]
     Active Substance: DIPHENHYDRAMINE HYDROCHLORIDE
     Route: 065

REACTIONS (6)
  - Contusion [Unknown]
  - Skin irritation [Unknown]
  - Pruritus [Unknown]
  - Pain of skin [Unknown]
  - Scratch [Unknown]
  - Product preparation error [Unknown]

NARRATIVE: CASE EVENT DATE: 20241007
